FAERS Safety Report 24080316 (Version 3)
Quarter: 2024Q3

REPORT INFORMATION
  Report Type: Spontaneous
  Country: US (occurrence: US)
  Receive Date: 20240711
  Receipt Date: 20240716
  Transmission Date: 20241017
  Serious: No
  Sender: PFIZER
  Company Number: US-PFIZER INC-202400209854

PATIENT
  Age: 74 Year
  Sex: Male
  Weight: 73.48 kg

DRUGS (2)
  1. ADCETRIS [Suspect]
     Active Substance: BRENTUXIMAB VEDOTIN
     Indication: T-cell lymphoma
     Dosage: UNK
     Dates: start: 20240627
  2. ADCETRIS [Suspect]
     Active Substance: BRENTUXIMAB VEDOTIN
     Indication: Sinusitis fungal

REACTIONS (2)
  - Sinus tachycardia [Recovered/Resolved with Sequelae]
  - Fear [Unknown]

NARRATIVE: CASE EVENT DATE: 20240101
